FAERS Safety Report 5909110-0 (Version None)
Quarter: 2008Q3

REPORT INFORMATION
  Report Type: 
  Country: None (occurrence: None)
  Receive Date: 20080929
  Receipt Date: 20080912
  Transmission Date: 20090109
  Serious: Yes (Hospitalization)
  Sender: FDA-Public Use
  Company Number: 8029296

PATIENT
  Age: 33 Year
  Sex: Female
  Weight: 75 kg

DRUGS (8)
  1. KEPPRA [Suspect]
     Indication: EPILEPSY
     Dosage: 750 MG 2/D PO
     Route: 048
  2. FLEXERIL [Concomitant]
  3. VITAMIN TAB [Concomitant]
  4. FOLIC ACID [Concomitant]
  5. COLACE [Concomitant]
  6. LOVENOX [Concomitant]
  7. TEGRETOL [Concomitant]
  8. AMOXICILLIN [Concomitant]

REACTIONS (6)
  - CONDITION AGGRAVATED [None]
  - DEEP VEIN THROMBOSIS [None]
  - DRUG EXPOSURE DURING PREGNANCY [None]
  - HAEMOGLOBIN DECREASED [None]
  - PREGNANCY [None]
  - URINARY TRACT INFECTION [None]
